FAERS Safety Report 18791191 (Version 3)
Quarter: 2021Q2

REPORT INFORMATION
  Report Type: Report from Study
  Country: DE (occurrence: DE)
  Receive Date: 20210126
  Receipt Date: 20210407
  Transmission Date: 20210717
  Serious: Yes (Other)
  Sender: FDA-Public Use
  Company Number: DE-INCYTE CORPORATION-2020IN013147

PATIENT

DRUGS (21)
  1. INCB018424 [Suspect]
     Active Substance: RUXOLITINIB
     Dosage: 10 MG, PER DAY
     Route: 048
     Dates: start: 20201027, end: 20201123
  2. SYREA [Concomitant]
     Active Substance: HYDROXYUREA
     Dosage: 1500 MG, PER DAY
     Route: 065
     Dates: start: 20160504, end: 20160531
  3. INCB018424 [Suspect]
     Active Substance: RUXOLITINIB
     Dosage: 40 MG, PER DAY
     Route: 048
     Dates: start: 20201124
  4. CALCIUM [Concomitant]
     Active Substance: CALCIUM
     Indication: CALCIUM DEFICIENCY
     Dosage: 500 MG, PER DAY
     Route: 065
     Dates: start: 20190118
  5. INCB018424 [Suspect]
     Active Substance: RUXOLITINIB
     Dosage: 25 MG, PER DAY
     Route: 048
     Dates: start: 20181217, end: 20200123
  6. INCB018424 [Suspect]
     Active Substance: RUXOLITINIB
     Dosage: 10 MG, PER DAY
     Route: 048
     Dates: start: 20200306, end: 20200416
  7. INCB018424 [Suspect]
     Active Substance: RUXOLITINIB
     Dosage: 15 MG, PER DAY
     Route: 048
     Dates: start: 20200417, end: 20200514
  8. SYREA [Concomitant]
     Active Substance: HYDROXYUREA
     Dosage: 1000 MG, PER DAY
     Route: 065
     Dates: start: 20160614
  9. B12 DEPOT ROTEXMEDICA [Concomitant]
     Indication: ANAEMIA VITAMIN B12 DEFICIENCY
     Dosage: UNK
     Route: 065
     Dates: start: 20200715
  10. INCB018424 [Suspect]
     Active Substance: RUXOLITINIB
     Indication: MYELOFIBROSIS
     Dosage: 30 MG, PER DAY
     Route: 048
     Dates: start: 20180702, end: 20181216
  11. NOVALGIN (METAMIZOLE SODIUM) [Concomitant]
     Active Substance: METAMIZOLE SODIUM
     Indication: HERPES ZOSTER
     Dosage: 50 ML, PRN (DROP)
     Route: 065
     Dates: start: 20180924
  12. SILAPO [Concomitant]
     Indication: HAEMOGLOBIN ABNORMAL
     Dosage: 30000 IU PER DAY
     Route: 065
     Dates: start: 20201230
  13. INCB018424 [Suspect]
     Active Substance: RUXOLITINIB
     Dosage: 20 MG, PER DAY
     Route: 048
     Dates: start: 20200124, end: 20200305
  14. INCB018424 [Suspect]
     Active Substance: RUXOLITINIB
     Dosage: 20 MG, PER DAY
     Route: 048
     Dates: start: 20200515, end: 20200618
  15. INCB018424 [Suspect]
     Active Substance: RUXOLITINIB
     Dosage: 10 MG, PER DAY
     Route: 048
     Dates: start: 20200911, end: 20201016
  16. VERSATIS [Concomitant]
     Active Substance: LIDOCAINE
     Indication: HERPES ZOSTER
     Dosage: 1 DF, PER DAY (MEDICAL PATCHES)
     Route: 065
     Dates: start: 20180810
  17. INCB018424 [Suspect]
     Active Substance: RUXOLITINIB
     Dosage: 15 MG, PER DAY
     Route: 048
     Dates: start: 20200619, end: 20200910
  18. ASPIRIN. [Concomitant]
     Active Substance: ASPIRIN
     Indication: PLATELET COUNT INCREASED
     Dosage: 100 MG, PER DAY
     Route: 065
     Dates: start: 20110906
  19. SYREA [Concomitant]
     Active Substance: HYDROXYUREA
     Indication: MYELOFIBROSIS
     Dosage: 10000 MG, PER DAY
     Route: 065
     Dates: start: 20100705, end: 20160302
  20. DEKRISTOL [Concomitant]
     Active Substance: CHOLECALCIFEROL
     Indication: VITAMIN D DEFICIENCY
     Dosage: 2.857 IU PER DAY
     Route: 065
     Dates: start: 20181026
  21. SYREA [Concomitant]
     Active Substance: HYDROXYUREA
     Dosage: 500 MG, PER DAY
     Route: 065
     Dates: start: 20160601, end: 20160613

REACTIONS (4)
  - Hypertensive heart disease [Unknown]
  - Pain [Unknown]
  - Basal cell carcinoma [Recovered/Resolved]
  - Second primary malignancy [Recovered/Resolved]

NARRATIVE: CASE EVENT DATE: 20200206
